FAERS Safety Report 11608958 (Version 1)
Quarter: 2015Q4

REPORT INFORMATION
  Report Type: Spontaneous
  Country: US (occurrence: US)
  Receive Date: 20151007
  Receipt Date: 20151007
  Transmission Date: 20160304
  Serious: Yes (Other)
  Sender: FDA-Public Use
  Company Number: US-JNJFOC-20151000418

PATIENT

DRUGS (2)
  1. DOXORUBICIN HYDROCHLORIDE. [Suspect]
     Active Substance: DOXORUBICIN HYDROCHLORIDE
     Indication: HEPATOCELLULAR CARCINOMA
     Dosage: 60-360 MG/M2
     Route: 042
  2. SORAFENIB [Suspect]
     Active Substance: SORAFENIB
     Indication: HEPATOCELLULAR CARCINOMA
     Dosage: 200-800MG
     Route: 065

REACTIONS (12)
  - Gastrointestinal haemorrhage [Unknown]
  - Aspartate aminotransferase increased [Unknown]
  - Neutropenia [Unknown]
  - Lymphopenia [Unknown]
  - Alanine aminotransferase increased [Unknown]
  - Hyperbilirubinaemia [Unknown]
  - Hypertension [Unknown]
  - Hypophosphataemia [Unknown]
  - Hyponatraemia [Unknown]
  - Off label use [Unknown]
  - Anaemia [Unknown]
  - Ascites [Unknown]
